FAERS Safety Report 25841920 (Version 1)
Quarter: 2025Q3

REPORT INFORMATION
  Report Type: Spontaneous
  Country: US (occurrence: None)
  Receive Date: 20250924
  Receipt Date: 20250924
  Transmission Date: 20251021
  Serious: Yes (Hospitalization)
  Sender: FDA-CTU
  Company Number: None

PATIENT
  Sex: Female

DRUGS (12)
  1. DALFAMPRIDINE [Suspect]
     Active Substance: DALFAMPRIDINE
     Indication: Multiple sclerosis
     Dosage: FREQUENCY : TWICE A DAY;?
     Route: 048
     Dates: start: 20181017
  2. OCREVUS [Suspect]
     Active Substance: OCRELIZUMAB
  3. AMPYRA TAB 10MG [Concomitant]
  4. BIOTIN TAB 1000MCG [Concomitant]
  5. DIAZEPAM TAB 2MG [Concomitant]
  6. FLONASE ALGY SPR 50MCG [Concomitant]
  7. GABAPENTI N TAB 600MG [Concomitant]
  8. LEVOTHYROXIN TAB 75MCG [Concomitant]
  9. LIPITOR TAB 40MG [Concomitant]
  10. LISINOPRIL TAB 1 0MG [Concomitant]
  11. MULTI VITAMN TAB MINERALS [Concomitant]
  12. OCREVUS [Concomitant]
     Active Substance: OCRELIZUMAB

REACTIONS (2)
  - Hospitalisation [None]
  - Therapy cessation [None]
